FAERS Safety Report 5945284-3 (Version None)
Quarter: 2008Q4

REPORT INFORMATION
  Report Type: 
  Country: None (occurrence: None)
  Receive Date: 20081030
  Receipt Date: 20081024
  Transmission Date: 20090506
  Serious: Yes (Life-Threatening)
  Sender: FDA-Public Use
  Company Number: 200814223

PATIENT
  Age: 43 Year
  Sex: Female

DRUGS (5)
  1. RHOPHYLAC [Suspect]
     Indication: PROPHYLAXIS AGAINST RH ISOIMMUNISATION
     Dosage: 300 UG DAILY; IM
     Route: 030
     Dates: start: 20080729, end: 20080729
  2. MIFEGYNE [Suspect]
     Indication: ABORTION INDUCED
     Dosage: 600 MG DAILY; PO
     Route: 048
     Dates: start: 20080729, end: 20080729
  3. COAPROVEL [Concomitant]
  4. PLENDIL [Concomitant]
  5. BILOL [Concomitant]

REACTIONS (4)
  - CARDIAC ARREST [None]
  - CORONARY ARTERY DISEASE [None]
  - DRUG EXPOSURE DURING PREGNANCY [None]
  - MYOCARDIAL INFARCTION [None]
